FAERS Safety Report 6739825-6 (Version None)
Quarter: 2010Q2

REPORT INFORMATION
  Report Type: 
  Country: None (occurrence: None)
  Receive Date: 20100525
  Receipt Date: 20100513
  Transmission Date: 20101027
  Serious: Yes (Hospitalization, Other)
  Sender: FDA-Public Use
  Company Number: PHHY2009BR50457

PATIENT
  Sex: Male
  Weight: 107 kg

DRUGS (24)
  1. TEGRETOL [Suspect]
     Indication: SCHIZOPHRENIA, PARANOID TYPE
     Dosage: 200 MG, QD
     Route: 048
     Dates: start: 20030101
  2. TEGRETOL [Interacting]
     Dosage: 400 MG, BID
     Dates: start: 20091117
  3. TEGRETOL [Interacting]
     Dosage: UNK
  4. TEGRETOL-XR [Interacting]
     Dosage: 200 MG, BID
     Route: 048
     Dates: start: 20100101
  5. TEGRETOL-XR [Interacting]
     Dosage: 2 DF (200 MG EACH), BID
     Route: 048
  6. RIVOTRIL [Interacting]
     Dosage: 5 DRP, DAILY
  7. RIVOTRIL [Interacting]
     Dosage: 60 DRP, AT NIGHT
     Dates: start: 20030101
  8. GEODON [Interacting]
     Indication: SCHIZOPHRENIA
     Dosage: 40 MG, BID
     Route: 048
     Dates: start: 20080401
  9. GEODON [Interacting]
     Dosage: 80 MG, BID
  10. SEROQUEL [Concomitant]
  11. RISPERIDONE [Concomitant]
     Dosage: UNK
  12. RISPERIDONE [Concomitant]
     Dosage: 1 DF, DAILY
     Dates: start: 20060101, end: 20070101
  13. HALDOL [Concomitant]
     Dosage: UNK
     Dates: start: 20070101
  14. ZYPREXA [Concomitant]
     Dosage: QID
  15. ZYPREXA [Concomitant]
     Dosage: MAXIMUM DOSAGE
     Dates: start: 20071001, end: 20080401
  16. NEOZINE [Concomitant]
     Dosage: 25 MG, AT NIGHT
  17. NEOZINE [Concomitant]
     Dosage: 100 MG, UNK
  18. PAROXETINE HCL [Concomitant]
     Dosage: 60 MG, 1 TABLET
     Route: 048
     Dates: start: 20090901
  19. AMPLICTIL [Concomitant]
     Dosage: 2 DF, AT NIGHT
  20. SERTRALINE HCL [Concomitant]
     Dosage: 50 MG, BID
     Dates: start: 20050101, end: 20080801
  21. BIPERIDEN HYDROCHLORIDE TAB [Concomitant]
  22. PONDERA [Concomitant]
  23. ANTICONVULSANTS [Concomitant]
  24. ANTIPYRETICS [Concomitant]

REACTIONS (22)
  - AGGRESSION [None]
  - BLOOD CHOLESTEROL INCREASED [None]
  - BLOOD TRIGLYCERIDES INCREASED [None]
  - CRYING [None]
  - DELUSION [None]
  - DEPRESSION [None]
  - DRUG LEVEL DECREASED [None]
  - FATIGUE [None]
  - HALLUCINATION, AUDITORY [None]
  - HALLUCINATIONS, MIXED [None]
  - INSOMNIA [None]
  - MENTAL IMPAIRMENT [None]
  - MOOD SWINGS [None]
  - PANIC ATTACK [None]
  - PANIC DISORDER [None]
  - PANIC REACTION [None]
  - PSYCHOTIC DISORDER [None]
  - SOMNOLENCE [None]
  - SUICIDE ATTEMPT [None]
  - WEIGHT INCREASED [None]
  - WHITE BLOOD CELL COUNT INCREASED [None]
  - WITHDRAWAL SYNDROME [None]
